FAERS Safety Report 5130558-9 (Version None)
Quarter: 2006Q4

REPORT INFORMATION
  Report Type: 
  Country: None (occurrence: None)
  Receive Date: 20061017
  Receipt Date: 20061017
  Transmission Date: 20070319
  Serious: Yes (Other)
  Sender: FDA-Public Use
  Company Number: None

PATIENT
  Age: 43 Year
  Sex: Male
  Weight: 90.7194 kg

DRUGS (2)
  1. ALLOPURINOL [Suspect]
     Indication: DRUG THERAPY
     Dosage: 10MG 1 TIME DAILY PO
     Route: 048
     Dates: start: 20060901, end: 20060908
  2. ALLOPURINOL [Suspect]
     Indication: RENAL DISORDER
     Dosage: 10MG 1 TIME DAILY PO
     Route: 048
     Dates: start: 20060901, end: 20060908

REACTIONS (1)
  - RASH GENERALISED [None]
